FAERS Safety Report 9365922 (Version 2)
Quarter: 2013Q3

REPORT INFORMATION
  Report Type: Report from Study
  Country: FR (occurrence: FR)
  Receive Date: 20130625
  Receipt Date: 20130708
  Transmission Date: 20140515
  Serious: Yes (Other)
  Sender: FDA-Public Use
  Company Number: FR-AMGEN-FRACT2013044154

PATIENT
  Age: 45 Year
  Sex: Male
  Weight: 95 kg

DRUGS (4)
  1. PANITUMUMAB [Suspect]
     Indication: GASTROOESOPHAGEAL CANCER
     Dosage: 580 MG, UNK
     Route: 042
     Dates: start: 20130311, end: 20130603
  2. FOLINIC ACID [Concomitant]
     Indication: GASTROOESOPHAGEAL CANCER
     Dosage: 800 MG, UNK
     Route: 042
     Dates: start: 20130311
  3. OXALIPLATIN [Concomitant]
     Dosage: 170 MG, UNK
     Route: 042
     Dates: start: 20130311
  4. 5-FLUOROURACIL [Concomitant]
     Dosage: UNK
     Route: 042
     Dates: start: 20130311

REACTIONS (1)
  - Skin toxicity [Recovered/Resolved]
